FAERS Safety Report 8362072-1 (Version None)
Quarter: 2012Q2

REPORT INFORMATION
  Report Type: 
  Country: None (occurrence: None)
  Receive Date: 20120515
  Receipt Date: 20120510
  Transmission Date: 20120825
  Serious: Yes (Other)
  Sender: FDA-Public Use
  Company Number: IT-AMGEN-ITASP2012029713

PATIENT
  Age: 54 Year
  Sex: Female

DRUGS (6)
  1. IRINOTECAN HCL [Concomitant]
     Indication: PANCREATIC CARCINOMA
     Dosage: UNK
  2. FLUOROURACIL                       /00098802/ [Concomitant]
     Indication: PANCREATIC CARCINOMA
     Dosage: UNK
  3. LEUCOVORIN CALCIUM [Concomitant]
     Indication: PANCREATIC CARCINOMA
     Dosage: UNK
  4. NEULASTA [Suspect]
     Indication: PROPHYLAXIS
     Dosage: UNK
  5. NEULASTA [Suspect]
     Indication: CHEMOTHERAPY
  6. OXALIPLATIN [Concomitant]
     Indication: PANCREATIC CARCINOMA
     Dosage: UNK

REACTIONS (1)
  - SPLENOMEGALY [None]
